FAERS Safety Report 23136621 (Version 1)
Quarter: 2023Q4

REPORT INFORMATION
  Report Type: Spontaneous
  Country: US (occurrence: US)
  Receive Date: 20231102
  Receipt Date: 20231102
  Transmission Date: 20240109
  Serious: No
  Sender: FDA-Public Use
  Company Number: US-OYSTER POINT PHARMA, INC-US-OYS-23-000783

PATIENT
  Sex: Male

DRUGS (1)
  1. TYRVAYA [Suspect]
     Active Substance: VARENICLINE TARTRATE
     Indication: Product used for unknown indication
     Dosage: UNKNOWN
     Route: 045
     Dates: start: 2023, end: 2023

REACTIONS (4)
  - Product delivery mechanism issue [Unknown]
  - Product packaging quantity issue [Unknown]
  - Therapy interrupted [Unknown]
  - Therapy cessation [Unknown]
